FAERS Safety Report 13424615 (Version 1)
Quarter: 2017Q2

REPORT INFORMATION
  Report Type: Spontaneous
  Country: ES (occurrence: ES)
  Receive Date: 20170410
  Receipt Date: 20170410
  Transmission Date: 20170830
  Serious: Yes (Life-Threatening, Hospitalization)
  Sender: FDA-Public Use
  Company Number: ES-ELI_LILLY_AND_COMPANY-ES201704001204

PATIENT
  Age: 78 Year
  Sex: Male

DRUGS (8)
  1. VANDRAL [Suspect]
     Active Substance: VENLAFAXINE HYDROCHLORIDE
     Indication: PRODUCT USED FOR UNKNOWN INDICATION
     Dosage: 75 MG, QD
     Route: 048
     Dates: start: 20170301
  2. ZYPREXA [Suspect]
     Active Substance: OLANZAPINE
     Indication: DEMENTIA
     Dosage: 2.5 MG, QD
     Route: 048
     Dates: start: 20170301
  3. ALPRAZOLAM NORMON [Suspect]
     Active Substance: ALPRAZOLAM
     Indication: DEMENTIA
     Dosage: 1 DF, QD
     Route: 048
     Dates: start: 20170301, end: 20170317
  4. ALPRAZOLAM NORMON [Suspect]
     Active Substance: ALPRAZOLAM
     Dosage: 2 DF, QD
     Route: 048
     Dates: start: 20170301, end: 20170317
  5. RISPERDAL [Suspect]
     Active Substance: RISPERIDONE
     Dosage: 1 DF, UNKNOWN
     Route: 048
     Dates: start: 20170301
  6. SEGURIL [Concomitant]
     Active Substance: FUROSEMIDE
     Indication: HYPERTENSION
     Dosage: 40 MG, UNK
     Route: 048
     Dates: start: 20160216
  7. RISPERDAL [Suspect]
     Active Substance: RISPERIDONE
     Indication: DEMENTIA
     Dosage: 0.5 UNK, UNKNOWN
     Route: 048
     Dates: start: 20170301
  8. RISPERDAL [Suspect]
     Active Substance: RISPERIDONE
     Dosage: 0.5 DF, UNKNOWN
     Route: 048
     Dates: start: 20170301

REACTIONS (5)
  - Prescribed overdose [Unknown]
  - Sedation [Recovering/Resolving]
  - General physical health deterioration [Recovering/Resolving]
  - Fall [Recovered/Resolved]
  - Off label use [Unknown]

NARRATIVE: CASE EVENT DATE: 20170301
